FAERS Safety Report 25191833 (Version 1)
Quarter: 2025Q2

REPORT INFORMATION
  Report Type: Spontaneous
  Country: US (occurrence: None)
  Receive Date: 20250411
  Receipt Date: 20250411
  Transmission Date: 20250717
  Serious: Yes (Hospitalization)
  Sender: FDA-CTU
  Company Number: None

PATIENT
  Age: 68 Year
  Sex: Female

DRUGS (1)
  1. RINVOQ [Suspect]
     Active Substance: UPADACITINIB
     Indication: Rheumatoid arthritis

REACTIONS (9)
  - Feeling abnormal [None]
  - Intentional dose omission [None]
  - Arthralgia [None]
  - Joint stiffness [None]
  - Joint lock [None]
  - Loss of consciousness [None]
  - Dialysis [None]
  - Blood pressure decreased [None]
  - Abdominal pain upper [None]
